FAERS Safety Report 13660345 (Version 6)
Quarter: 2018Q1

REPORT INFORMATION
  Report Type: Spontaneous
  Country: US (occurrence: US)
  Receive Date: 20170616
  Receipt Date: 20180216
  Transmission Date: 20180508
  Serious: Yes (Hospitalization, Other)
  Sender: FDA-Public Use
  Company Number: US-PFIZER INC-2016571073

PATIENT
  Age: 48 Year
  Sex: Female

DRUGS (2)
  1. SOMAVERT [Suspect]
     Active Substance: PEGVISOMANT
     Dosage: 10 MG, DAILY
     Dates: start: 201603
  2. SOMAVERT [Suspect]
     Active Substance: PEGVISOMANT
     Dosage: 10 MG, DAILY
     Dates: start: 201601

REACTIONS (14)
  - Pyrexia [Unknown]
  - Arthralgia [Unknown]
  - Fall [Unknown]
  - Musculoskeletal pain [Unknown]
  - Albright^s disease [Unknown]
  - Pneumonia [Unknown]
  - Drug dose omission [Unknown]
  - Infection [Unknown]
  - Blood glucose decreased [Unknown]
  - Decubitus ulcer [Not Recovered/Not Resolved]
  - Bacterial infection [Unknown]
  - Blood pressure decreased [Unknown]
  - Malaise [Unknown]
  - Dehydration [Unknown]

NARRATIVE: CASE EVENT DATE: 20161104
